FAERS Safety Report 23669609 (Version 1)
Quarter: 2024Q1

REPORT INFORMATION
  Report Type: Spontaneous
  Country: US (occurrence: US)
  Receive Date: 20240325
  Receipt Date: 20240325
  Transmission Date: 20240410
  Serious: Yes (Hospitalization, Other)
  Sender: FDA-Public Use
  Company Number: US-GILEAD-2024-0666904

PATIENT
  Sex: Male

DRUGS (1)
  1. YESCARTA [Suspect]
     Active Substance: AXICABTAGENE CILOLEUCEL
     Indication: Diffuse large B-cell lymphoma
     Dosage: UNK
     Route: 065
     Dates: start: 20240314

REACTIONS (6)
  - Neurological symptom [Unknown]
  - Disorientation [Not Recovered/Not Resolved]
  - Speech disorder [Not Recovered/Not Resolved]
  - Neurotoxicity [Unknown]
  - Pyrexia [Recovered/Resolved]
  - Seizure [Recovered/Resolved]
